FAERS Safety Report 7923247 (Version 3)
Quarter: 2012Q4

REPORT INFORMATION
  Report Type: 
  Country: US (occurrence: US)
  Receive Date: 20110429
  Receipt Date: 20120917
  Transmission Date: 20130627
  Serious: No
  Sender: FDA-Public Use
  Company Number: US-ASTRAZENECA-2010SE29104

PATIENT
  Age: 62 Year
  Sex: Female

DRUGS (4)
  1. NEXIUM [Suspect]
     Route: 048
  2. FOSAMAX [Concomitant]
  3. METFORMIN [Concomitant]
  4. JANUVIA [Concomitant]

REACTIONS (9)
  - Gastrooesophageal reflux disease [Unknown]
  - Gastritis [Unknown]
  - Dyspepsia [Unknown]
  - Aphagia [Unknown]
  - Adverse drug reaction [Unknown]
  - Diarrhoea [Unknown]
  - Nausea [Unknown]
  - Malaise [Unknown]
  - Drug dose omission [Unknown]
